FAERS Safety Report 22020378 (Version 5)
Quarter: 2025Q2

REPORT INFORMATION
  Report Type: Spontaneous
  Country: US (occurrence: US)
  Receive Date: 20230222
  Receipt Date: 20250626
  Transmission Date: 20250717
  Serious: Yes (Other)
  Sender: SANOFI AVENTIS
  Company Number: US-SA-SAC20230217001485

PATIENT
  Age: 71 Year
  Sex: Female
  Weight: 74.87 kg

DRUGS (11)
  1. DUPIXENT [Suspect]
     Active Substance: DUPILUMAB
     Indication: Dermatitis atopic
     Dosage: 300 MG, QOW
     Route: 058
     Dates: start: 202003
  2. DUPIXENT [Suspect]
     Active Substance: DUPILUMAB
     Indication: Nasal polyps
     Dosage: 300 MG FREQUENCY: OTHER
     Route: 058
     Dates: start: 202304
  3. DUPIXENT [Suspect]
     Active Substance: DUPILUMAB
     Indication: Nasal polyps
  4. BACTRIM [Concomitant]
     Active Substance: SULFAMETHOXAZOLE\TRIMETHOPRIM
  5. RESTASIS [Concomitant]
     Active Substance: CYCLOSPORINE
  6. AZELASTINE HYDROCHLORIDE\FLUTICASONE PROPIONATE [Concomitant]
     Active Substance: AZELASTINE HYDROCHLORIDE\FLUTICASONE PROPIONATE
  7. CYANOCOBALAMIN [Concomitant]
     Active Substance: CYANOCOBALAMIN
  8. VITAMIN D3 [Concomitant]
     Active Substance: CHOLECALCIFEROL
  9. AMBIEN [Concomitant]
     Active Substance: ZOLPIDEM TARTRATE
  10. NEXIUM I.V. [Concomitant]
     Active Substance: ESOMEPRAZOLE SODIUM
  11. ATORVASTATIN CALCIUM [Concomitant]
     Active Substance: ATORVASTATIN CALCIUM

REACTIONS (10)
  - Cataract [Unknown]
  - COVID-19 [Unknown]
  - Cough [Unknown]
  - Symptom recurrence [Unknown]
  - Malaise [Unknown]
  - Sinus disorder [Unknown]
  - Ear inflammation [Unknown]
  - Urinary tract infection [Unknown]
  - Condition aggravated [Unknown]
  - Dry eye [Unknown]

NARRATIVE: CASE EVENT DATE: 20210101
